FAERS Safety Report 9504726 (Version 1)
Quarter: 2013Q3

REPORT INFORMATION
  Report Type: Spontaneous
  Country: US (occurrence: US)
  Receive Date: 20130906
  Receipt Date: 20130906
  Transmission Date: 20140515
  Serious: Yes (Other)
  Sender: FDA-Public Use
  Company Number: US-ASTRAZENECA-2013SE66777

PATIENT
  Age: 76 Year
  Sex: Female
  Weight: 90.7 kg

DRUGS (11)
  1. OMEPRAZOLE [Suspect]
     Indication: GASTRIC DISORDER
     Route: 048
     Dates: start: 2010
  2. CRESTOR [Suspect]
     Indication: BLOOD CHOLESTEROL ABNORMAL
     Route: 048
  3. CRESTOR [Suspect]
     Indication: BLOOD CHOLESTEROL ABNORMAL
     Route: 048
     Dates: end: 2012
  4. SYMBICORT PMDI [Suspect]
     Indication: ASTHMA
     Dosage: 2 PUFFS 180/4.5 MCG BID
     Route: 055
     Dates: start: 2013
  5. AMLODIPINE BENZAPRIL [Concomitant]
     Indication: BLOOD PRESSURE
     Route: 048
  6. FAMOTIDINE [Concomitant]
     Indication: GASTRIC DISORDER
     Route: 048
     Dates: start: 2010
  7. MONTELUKAST [Concomitant]
     Indication: DYSPNOEA
     Route: 048
     Dates: start: 2013
  8. MONTELUKAST [Concomitant]
     Indication: NASAL CONGESTION
     Route: 048
     Dates: start: 2013
  9. PRAMIPEXOLE [Concomitant]
     Indication: RESTLESS LEGS SYNDROME
     Route: 048
     Dates: start: 2012
  10. VITAMINS [Concomitant]
  11. SUPPLEMENTS [Concomitant]

REACTIONS (12)
  - Fall [Unknown]
  - Hip fracture [Unknown]
  - Myalgia [Unknown]
  - Gastric disorder [Unknown]
  - Blood pressure abnormal [Unknown]
  - Adverse event [Unknown]
  - Respiratory disorder [Unknown]
  - Restless legs syndrome [Unknown]
  - Asthma [Unknown]
  - Tension [Unknown]
  - Fibromyalgia [Unknown]
  - Muscular weakness [Unknown]
